FAERS Safety Report 9547605 (Version 1)
Quarter: 2013Q3

REPORT INFORMATION
  Report Type: Spontaneous
  Country: US (occurrence: None)
  Receive Date: 20130920
  Receipt Date: 20130920
  Transmission Date: 20140515
  Serious: Yes (Hospitalization)
  Sender: FDA-Public Use
  Company Number: 142487

PATIENT
  Age: 58 Year
  Sex: Female

DRUGS (1)
  1. CYTARABINE [Suspect]
     Indication: ACUTE LYMPHOCYTIC LEUKAEMIA
     Route: 037
     Dates: start: 20120727

REACTIONS (5)
  - Nausea [None]
  - Dehydration [None]
  - Vomiting [None]
  - Diarrhoea [None]
  - Decreased appetite [None]
